FAERS Safety Report 13733638 (Version 1)
Quarter: 2017Q3

REPORT INFORMATION
  Report Type: Spontaneous
  Country: US (occurrence: US)
  Receive Date: 20170707
  Receipt Date: 20170707
  Transmission Date: 20171127
  Serious: No
  Sender: FDA-Public Use
  Company Number: US-009507513-1706USA002023

PATIENT
  Age: 61 Year
  Sex: Female

DRUGS (2)
  1. ZETIA [Suspect]
     Active Substance: EZETIMIBE
     Indication: BLOOD CHOLESTEROL INCREASED
     Dosage: UNK, UNKNOWN
     Route: 065
  2. HUMIRA [Suspect]
     Active Substance: ADALIMUMAB
     Indication: RHEUMATOID ARTHRITIS
     Dosage: UNK, UNKNOWN
     Route: 058

REACTIONS (6)
  - Fatigue [Not Recovered/Not Resolved]
  - Gastrooesophageal reflux disease [Not Recovered/Not Resolved]
  - Viral infection [Not Recovered/Not Resolved]
  - Gastric disorder [Not Recovered/Not Resolved]
  - Gastrointestinal disorder [Not Recovered/Not Resolved]
  - Oesophageal spasm [Not Recovered/Not Resolved]

NARRATIVE: CASE EVENT DATE: 201703
